FAERS Safety Report 21684209 (Version 1)
Quarter: 2022Q4

REPORT INFORMATION
  Report Type: Spontaneous
  Country: US (occurrence: None)
  Receive Date: 20221202
  Receipt Date: 20221202
  Transmission Date: 20230113
  Serious: Yes (Death)
  Sender: FDA-Public Use
  Company Number: None

PATIENT
  Age: 86 Year
  Sex: Female

DRUGS (2)
  1. DEFERASIROX [Suspect]
     Active Substance: DEFERASIROX
     Indication: Myelofibrosis
     Dosage: 500MG  2 QAM, 1 QPM  BY MOUTH?
     Route: 048
  2. MEGACE [Concomitant]
     Active Substance: MEGESTROL ACETATE

REACTIONS (1)
  - Death [None]

NARRATIVE: CASE EVENT DATE: 20221123
